FAERS Safety Report 7681594-X (Version None)
Quarter: 2011Q3

REPORT INFORMATION
  Report Type: 
  Country: None (occurrence: None)
  Receive Date: 20110812
  Receipt Date: 20110803
  Transmission Date: 20111222
  Serious: Yes (Other)
  Sender: FDA-Public Use
  Company Number: PHHY2011FR70256

PATIENT
  Sex: Male

DRUGS (5)
  1. ACETAMINOPHEN AND TRAMADOL HCL [Concomitant]
     Indication: PAIN
  2. TASIGNA [Suspect]
     Indication: CHRONIC MYELOID LEUKAEMIA
     Dosage: UNK
     Dates: start: 20110617, end: 20110714
  3. FLECAINIDE ACETATE [Concomitant]
     Indication: ARRHYTHMIA
  4. TASIGNA [Suspect]
     Dosage: UNK
     Dates: start: 20110802
  5. BETA BLOCKERS [Concomitant]

REACTIONS (3)
  - ARRHYTHMIA [None]
  - OEDEMA PERIPHERAL [None]
  - INJURY [None]
